FAERS Safety Report 7207810-6 (Version None)
Quarter: 2011Q1

REPORT INFORMATION
  Report Type: 
  Country: None (occurrence: None)
  Receive Date: 20110104
  Receipt Date: 20101222
  Transmission Date: 20110831
  Serious: Yes (Hospitalization)
  Sender: FDA-Public Use
  Company Number: US-ASTRAZENECA-2010SE60569

PATIENT
  Age: 74 Year
  Sex: Female

DRUGS (4)
  1. LISINOPRIL [Concomitant]
     Dosage: 40 MG,  TWO TIMES A DAY
  2. SYMBICORT [Suspect]
     Dosage: 160-4.5 MCG DAILY
     Route: 055
  3. SYMBICORT [Suspect]
     Dosage: 80/4.5 MCG
     Route: 055
     Dates: start: 20090101
  4. PROAIR HFA [Concomitant]

REACTIONS (2)
  - DYSPNOEA [None]
  - PULMONARY THROMBOSIS [None]
